FAERS Safety Report 7307926-X (Version None)
Quarter: 2011Q1

REPORT INFORMATION
  Report Type: 
  Country: None (occurrence: None)
  Receive Date: 20110223
  Receipt Date: 20110216
  Transmission Date: 20110831
  Serious: Yes (Hospitalization, Other)
  Sender: FDA-Public Use
  Company Number: US-AMGEN-USASP2011009115

PATIENT
  Age: 37 Year
  Sex: Female

DRUGS (1)
  1. ENBREL [Suspect]
     Indication: RHEUMATOID ARTHRITIS
     Dosage: UNK
     Dates: start: 20010101

REACTIONS (7)
  - UTERINE CANCER [None]
  - METASTASES TO LUNG [None]
  - THYROID CANCER METASTATIC [None]
  - METASTASES TO KIDNEY [None]
  - POST PROCEDURAL HAEMORRHAGE [None]
  - PSEUDOMONAL SEPSIS [None]
  - RHEUMATOID ARTHRITIS [None]
